FAERS Safety Report 5891816-3 (Version None)
Quarter: 2008Q3

REPORT INFORMATION
  Report Type: 
  Country: None (occurrence: None)
  Receive Date: 20080908
  Receipt Date: 20080725
  Transmission Date: 20090109
  Serious: No
  Sender: FDA-Public Use
  Company Number: 002#2#2008-00613

PATIENT
  Sex: Female

DRUGS (2)
  1. NEUPRO [Suspect]
     Indication: PARKINSON'S DISEASE
     Dosage: 2MG/24H 1 IN 1 D, TRANSDERMAL
     Route: 062
     Dates: end: 20080501
  2. NEUPRO [Suspect]
     Indication: PARKINSON'S DISEASE
     Dosage: 2MG/24H 1 IN 1 D, TRANSDERMAL
     Route: 062
     Dates: start: 20080701

REACTIONS (4)
  - ASTHENIA [None]
  - DEPRESSED MOOD [None]
  - LETHARGY [None]
  - NAUSEA [None]
